FAERS Safety Report 19175545 (Version 1)
Quarter: 2021Q2

REPORT INFORMATION
  Report Type: Other
  Country: US (occurrence: US)
  Receive Date: 20210424
  Receipt Date: 20210424
  Transmission Date: 20210717
  Serious: Yes (Hospitalization, Congenital Anomaly, Other)
  Sender: FDA-Public Use
  Company Number: US-NUVO PHARMACEUTICALS INC-2109743

PATIENT

DRUGS (5)
  1. TOFACITINIB [Suspect]
     Active Substance: TOFACITINIB
     Route: 064
  2. HYDROXYCHLOROQUINE SULFATE. [Suspect]
     Active Substance: HYDROXYCHLOROQUINE SULFATE
     Route: 064
  3. PREDNISONE. [Suspect]
     Active Substance: PREDNISONE
     Route: 064
  4. SULFASALAZINE. [Suspect]
     Active Substance: SULFASALAZINE
     Indication: FOETAL EXPOSURE DURING PREGNANCY
     Route: 064
  5. RITUXIMAB. [Suspect]
     Active Substance: RITUXIMAB
     Route: 064

REACTIONS (9)
  - Neonatal pneumothorax [Unknown]
  - Foetal exposure during pregnancy [Unknown]
  - Prominent epicanthal folds [Unknown]
  - Pulmonary capillary haemangiomatosis [Unknown]
  - Ear malformation [Unknown]
  - Diastasis recti abdominis [Unknown]
  - Micrognathia [Unknown]
  - Plagiocephaly [Unknown]
  - Hydrocele [Unknown]
